FAERS Safety Report 6026835-X (Version None)
Quarter: 2009Q1

REPORT INFORMATION
  Report Type: 
  Country: None (occurrence: None)
  Receive Date: 20090105
  Receipt Date: 20081227
  Transmission Date: 20090719
  Serious: Yes (Hospitalization, Other)
  Sender: FDA-Public Use
  Company Number: GB-NOVOPROD-282750

PATIENT
  Sex: Female

DRUGS (3)
  1. NOVOMIX 30 [Suspect]
     Indication: INSULIN-REQUIRING TYPE 2 DIABETES MELLITUS
     Dosage: 100 IU, QD
     Route: 058
  2. NOVOMIX 30 [Suspect]
     Dosage: 138 IU, QD
     Route: 058
  3. NOVOMIX 30 [Suspect]
     Dosage: 100 IU, QD
     Route: 058

REACTIONS (3)
  - HYPERGLYCAEMIA [None]
  - HYPOGLYCAEMIA [None]
  - MYOCARDIAL INFARCTION [None]
